FAERS Safety Report 23145807 (Version 1)
Quarter: 2023Q4

REPORT INFORMATION
  Report Type: Spontaneous
  Country: BR (occurrence: BR)
  Receive Date: 20231103
  Receipt Date: 20231103
  Transmission Date: 20240109
  Serious: Yes (Death, Other)
  Sender: FDA-Public Use
  Company Number: BR-AMGEN-BRASP2023192913

PATIENT

DRUGS (1)
  1. RITUXIMAB [Suspect]
     Active Substance: RITUXIMAB
     Indication: Pemphigus
     Dosage: UNK
     Route: 065

REACTIONS (11)
  - Renal cancer [Fatal]
  - Pemphigus [Unknown]
  - Prostate cancer [Unknown]
  - Off label use [Unknown]
  - Skin infection [Unknown]
  - Haematuria [Unknown]
  - Latent tuberculosis [Unknown]
  - Urinary tract infection [Unknown]
  - Nausea [Unknown]
  - Vomiting [Unknown]
  - Headache [Unknown]
